FAERS Safety Report 14830004 (Version 1)
Quarter: 2018Q2

REPORT INFORMATION
  Report Type: Spontaneous
  Country: GB (occurrence: GB)
  Receive Date: 20180430
  Receipt Date: 20180430
  Transmission Date: 20180711
  Serious: Yes (Hospitalization, Other)
  Sender: FDA-Public Use
  Company Number: GB-EDENBRIDGE PHARMACEUTICALS, LLC-GB-2018EDE000077

PATIENT
  Age: 61 Year
  Sex: Male

DRUGS (11)
  1. PREDNISOLONE SODIUM PHOSPHATE. [Suspect]
     Active Substance: PREDNISOLONE SODIUM PHOSPHATE
     Dosage: 40-60 MG, QD
  2. AZATHIOPRINE. [Suspect]
     Active Substance: AZATHIOPRINE
     Indication: UVEITIS
     Dosage: UNK
  3. COTRIMOXAZOLE [Suspect]
     Active Substance: SULFAMETHOXAZOLE\TRIMETHOPRIM
     Indication: PROPHYLAXIS
     Dosage: 480 MG, THREE TIMES WEEKLY
  4. PREDNISOLONE SODIUM PHOSPHATE. [Suspect]
     Active Substance: PREDNISOLONE SODIUM PHOSPHATE
     Dosage: 20 MG, QD
  5. METHYLPREDNISOLONE. [Suspect]
     Active Substance: METHYLPREDNISOLONE
     Indication: UVEITIS
     Dosage: 3 X 1 G
     Route: 042
  6. MYCOPHENOLATE MOFETIL. [Suspect]
     Active Substance: MYCOPHENOLATE MOFETIL
     Indication: UVEITIS
     Dosage: 2.5 G, QD
  7. TRIAMCINOLONE [Suspect]
     Active Substance: TRIAMCINOLONE
     Indication: UVEITIS
     Dosage: UNK
  8. INFLIXIMAB [Suspect]
     Active Substance: INFLIXIMAB
     Indication: UVEITIS
     Dosage: 5 MG/KG, WEEKS 0, 2, AND 6, AND 8-WEEKLY THEREAFTER
  9. INFLIXIMAB [Suspect]
     Active Substance: INFLIXIMAB
     Dosage: 6-WEEKLY INFUSION
  10. PREDNISOLONE SODIUM PHOSPHATE. [Suspect]
     Active Substance: PREDNISOLONE SODIUM PHOSPHATE
     Indication: UVEITIS
     Dosage: 1.5 MG/KG, UNK
  11. PREDNISOLONE SODIUM PHOSPHATE. [Suspect]
     Active Substance: PREDNISOLONE SODIUM PHOSPHATE
     Dosage: 40 MG, QD

REACTIONS (3)
  - Sepsis [Unknown]
  - Multiple organ dysfunction syndrome [Unknown]
  - Pneumocystis jirovecii infection [Unknown]
